FAERS Safety Report 7961699-6 (Version None)
Quarter: 2011Q4

REPORT INFORMATION
  Report Type: 
  Country: None (occurrence: None)
  Receive Date: 20111207
  Receipt Date: 20111201
  Transmission Date: 20120403
  Serious: Yes (Death, Hospitalization)
  Sender: FDA-Public Use
  Company Number: PHHY2011US105778

PATIENT
  Age: 33 Year
  Sex: Female

DRUGS (1)
  1. AMANTADINE HCL [Suspect]
     Dosage: 6.2 G, UNK

REACTIONS (12)
  - INTENTIONAL SELF-INJURY [None]
  - CARDIAC ARREST [None]
  - VENTRICULAR TACHYCARDIA [None]
  - ACUTE RESPIRATORY DISTRESS SYNDROME [None]
  - HALLUCINATION [None]
  - HYPOXIA [None]
  - SEPTIC SHOCK [None]
  - DISORIENTATION [None]
  - CONFUSIONAL STATE [None]
  - TOXICITY TO VARIOUS AGENTS [None]
  - OVERDOSE [None]
  - CONVULSION [None]
